FAERS Safety Report 6722564-5 (Version None)
Quarter: 2010Q2

REPORT INFORMATION
  Report Type: 
  Country: None (occurrence: None)
  Receive Date: 20100512
  Receipt Date: 20100503
  Transmission Date: 20101027
  Serious: Yes (Hospitalization)
  Sender: FDA-Public Use
  Company Number: DE-PFIZER INC-2010055147

PATIENT
  Age: 81 Year
  Sex: Female
  Weight: 77 kg

DRUGS (8)
  1. SUTENT [Suspect]
     Indication: METASTASIS
     Dosage: 50 MG, 1X/DAY
     Route: 048
     Dates: start: 20100201, end: 20100305
  2. REMERGIL [Concomitant]
     Indication: DEPRESSION
     Dosage: 30 MG, 1X/DAY
  3. TORSEMIDE [Concomitant]
     Indication: HYPERTENSION
     Dosage: 10 MG, 1X/DAY
     Route: 048
  4. ASPIRIN [Concomitant]
     Indication: HYPERTENSION
     Dosage: 1 DF, 1X/DAY
     Route: 048
  5. PREDNISOLON [Concomitant]
     Dosage: 5 MG, 1X/DAY
     Route: 048
     Dates: end: 20100310
  6. CARVEDILOL [Concomitant]
     Indication: HYPERTENSION
     Dosage: UNK
     Route: 048
     Dates: end: 20100305
  7. CARMEN [Concomitant]
     Indication: HYPERTENSION
     Dosage: UNK
     Route: 048
     Dates: end: 20100305
  8. CANDESARTAN CILEXETIL [Concomitant]
     Indication: HYPERTENSION
     Dosage: UNK
     Route: 048
     Dates: end: 20100305

REACTIONS (3)
  - ABASIA [None]
  - CEREBELLAR ATAXIA [None]
  - POLYNEUROPATHY [None]
